FAERS Safety Report 10601726 (Version 2)
Quarter: 2014Q4

REPORT INFORMATION
  Report Type: Spontaneous
  Country: US (occurrence: US)
  Receive Date: 20141124
  Receipt Date: 20141217
  Transmission Date: 20150529
  Serious: Yes (Hospitalization, Other)
  Sender: FDA-Public Use
  Company Number: US-TEVA-523594USA

PATIENT
  Sex: Female

DRUGS (1)
  1. PROAIR HFA [Suspect]
     Active Substance: ALBUTEROL SULFATE
     Indication: PULMONARY OEDEMA
     Route: 055

REACTIONS (9)
  - Asthenia [Recovering/Resolving]
  - Product use issue [Unknown]
  - Pulmonary oedema [Recovering/Resolving]
  - Therapeutic response decreased [Recovering/Resolving]
  - Heart valve incompetence [Recovering/Resolving]
  - Back pain [Recovering/Resolving]
  - Fatigue [Recovering/Resolving]
  - Asthma [Recovering/Resolving]
  - Wrong technique in drug usage process [Unknown]
